FAERS Safety Report 7315644-7 (Version None)
Quarter: 2011Q1

REPORT INFORMATION
  Report Type: 
  Country: None (occurrence: None)
  Receive Date: 20110225
  Receipt Date: 20110214
  Transmission Date: 20110831
  Serious: Yes (Other)
  Sender: FDA-Public Use
  Company Number: PHHY2011GB11524

PATIENT
  Age: 63 Year
  Sex: Female

DRUGS (2)
  1. LEVOTHYROXINE [Suspect]
     Dosage: UNK
  2. LOSARTAN POTASSIUM [Suspect]
     Dosage: 100 MG, UNK
     Dates: start: 20101213, end: 20110122

REACTIONS (2)
  - DRUG DISPENSING ERROR [None]
  - BLOOD TEST ABNORMAL [None]
